FAERS Safety Report 13167838 (Version 1)
Quarter: 2017Q1

REPORT INFORMATION
  Report Type: Spontaneous
  Country: US (occurrence: US)
  Receive Date: 20170131
  Receipt Date: 20170131
  Transmission Date: 20170428
  Serious: Yes (Hospitalization)
  Sender: FDA-Public Use
  Company Number: US-BAYER-2017-018531

PATIENT
  Age: 61 Year
  Sex: Male
  Weight: 108.9 kg

DRUGS (2)
  1. ALKA-SELTZER ORIGINAL [Suspect]
     Active Substance: ANHYDROUS CITRIC ACID\ASPIRIN\SODIUM BICARBONATE
     Dosage: UNK
     Dates: start: 20100924
  2. WARFARIN [Suspect]
     Active Substance: WARFARIN
     Dosage: 10 MG, UNK
     Route: 048
     Dates: start: 20100723, end: 20100930

REACTIONS (3)
  - Melaena [Recovered/Resolved]
  - Gastric haemorrhage [Recovered/Resolved]
  - Anaemia [Recovered/Resolved]

NARRATIVE: CASE EVENT DATE: 20101001
